FAERS Safety Report 9548879 (Version 1)
Quarter: 2013Q3

REPORT INFORMATION
  Report Type: Spontaneous
  Country: SE (occurrence: SE)
  Receive Date: 20130924
  Receipt Date: 20130924
  Transmission Date: 20140515
  Serious: Yes (Other)
  Sender: FDA-Public Use
  Company Number: SE-PFIZER INC-2013272096

PATIENT
  Sex: Male
  Weight: 95 kg

DRUGS (3)
  1. INSPRA [Suspect]
     Indication: HYPERTENSION
     Dosage: 50 MG, 1X/DAY
     Dates: start: 2005
  2. NORVASC [Suspect]
     Indication: HYPERTENSION
     Dosage: 10 MG, 1X/DAY
     Dates: end: 20130905
  3. OMEPRAZOL [Concomitant]
     Indication: GASTRIC ULCER
     Dosage: UNK

REACTIONS (5)
  - Lung neoplasm malignant [Unknown]
  - Dyspnoea [Not Recovered/Not Resolved]
  - Weight decreased [Recovered/Resolved]
  - Dizziness [Not Recovered/Not Resolved]
  - Asthenia [Not Recovered/Not Resolved]
